FAERS Safety Report 6626694-8 (Version None)
Quarter: 2010Q1

REPORT INFORMATION
  Report Type: 
  Country: None (occurrence: None)
  Receive Date: 20100308
  Receipt Date: 20100221
  Transmission Date: 20100710
  Serious: Yes (Disabling)
  Sender: FDA-Public Use
  Company Number: GB-DEXPHARM-20100198

PATIENT
  Age: 48 Year
  Sex: Male

DRUGS (1)
  1. SAVLON [Suspect]
     Indication: SKIN TEST
     Dosage: TOPICAL
     Route: 061
     Dates: end: 20091120

REACTIONS (1)
  - DERMATITIS CONTACT [None]
